FAERS Safety Report 20670882 (Version 1)
Quarter: 2022Q2

REPORT INFORMATION
  Report Type: Spontaneous
  Country: JP (occurrence: JP)
  Receive Date: 20220404
  Receipt Date: 20220404
  Transmission Date: 20220721
  Serious: Yes (Disabling)
  Sender: FDA-Public Use
  Company Number: JP-BAUSCH-BL-2022-008320

PATIENT
  Age: 78 Year
  Sex: Female

DRUGS (2)
  1. BROMFENAC SODIUM [Suspect]
     Active Substance: BROMFENAC SODIUM
     Indication: Conjunctivitis
     Route: 047
  2. ALPHAGAN P [Suspect]
     Active Substance: BRIMONIDINE TARTRATE
     Indication: Glaucoma
     Dosage: FOR BOTH EYES
     Route: 047
     Dates: start: 20220314

REACTIONS (1)
  - Corneal opacity [Not Recovered/Not Resolved]
